FAERS Safety Report 5136642-8 (Version None)
Quarter: 2006Q4

REPORT INFORMATION
  Report Type: 
  Country: None (occurrence: None)
  Receive Date: 20061023
  Receipt Date: 20061012
  Transmission Date: 20070319
  Serious: Yes (Other)
  Sender: FDA-Public Use
  Company Number: 2006125264

PATIENT
  Sex: Female
  Weight: 61.2356 kg

DRUGS (1)
  1. XANAX [Suspect]
     Indication: BIPOLAR DISORDER

REACTIONS (16)
  - AGITATION [None]
  - ANGER [None]
  - APATHY [None]
  - BLADDER DISORDER [None]
  - DECREASED APPETITE [None]
  - DRUG INEFFECTIVE [None]
  - INFECTION [None]
  - IRRITABLE BOWEL SYNDROME [None]
  - OEDEMA PERIPHERAL [None]
  - PANIC DISORDER [None]
  - PARANOIA [None]
  - PERSONALITY CHANGE [None]
  - PHARYNGOLARYNGEAL PAIN [None]
  - PSYCHIATRIC SYMPTOM [None]
  - SUICIDAL IDEATION [None]
  - THINKING ABNORMAL [None]
